FAERS Safety Report 10467851 (Version 3)
Quarter: 2018Q2

REPORT INFORMATION
  Report Type: Spontaneous
  Country: AU (occurrence: AU)
  Receive Date: 20140922
  Receipt Date: 20180419
  Transmission Date: 20180711
  Serious: Yes (Death, Hospitalization)
  Sender: FDA-Public Use
  Company Number: AU-MYLANLABS-2014M1004895

PATIENT
  Age: 32 Year
  Sex: Female

DRUGS (6)
  1. IBUPROFEN. [Suspect]
     Active Substance: IBUPROFEN
     Indication: TOOTHACHE
     Dosage: 8 DF, QD
  2. IRON [Concomitant]
     Active Substance: IRON
     Indication: PRODUCT USED FOR UNKNOWN INDICATION
  3. VITAMIN B12 [Concomitant]
     Active Substance: CYANOCOBALAMIN
     Indication: PRODUCT USED FOR UNKNOWN INDICATION
  4. IBUPROFEN. [Suspect]
     Active Substance: IBUPROFEN
     Indication: TOOTH ABSCESS
  5. ESOMEPRAZOLE [Concomitant]
     Active Substance: ESOMEPRAZOLE
     Indication: PRODUCT USED FOR UNKNOWN INDICATION
     Dosage: 40 MG, QD
  6. DOSULEPIN HYDROCHLORIDE [Concomitant]
     Active Substance: DOTHIEPIN HYDROCHLORIDE
     Indication: PRODUCT USED FOR UNKNOWN INDICATION
     Dosage: 200 MG, UNK
     Route: 065

REACTIONS (13)
  - Anaemia vitamin B12 deficiency [Fatal]
  - Iron deficiency anaemia [Fatal]
  - Drug abuse [Fatal]
  - Protein-losing gastroenteropathy [Fatal]
  - Renal tubular acidosis [Fatal]
  - Oesophageal stenosis [Fatal]
  - Vitamin D deficiency [Fatal]
  - Gastric ulcer haemorrhage [Fatal]
  - Hypoalbuminaemia [Fatal]
  - Intestinal diaphragm disease [Fatal]
  - Nephropathy toxic [Fatal]
  - Duodenal ulcer [Fatal]
  - Small intestinal stenosis [Fatal]

NARRATIVE: CASE EVENT DATE: 20090615
